FAERS Safety Report 22258265 (Version 2)
Quarter: 2023Q2

REPORT INFORMATION
  Report Type: Spontaneous
  Country: AU (occurrence: AU)
  Receive Date: 20230427
  Receipt Date: 20230512
  Transmission Date: 20230722
  Serious: Yes (Hospitalization)
  Sender: FDA-Public Use
  Company Number: AU-MYLANLABS-2023M1044352

PATIENT
  Age: 45 Year
  Sex: Female

DRUGS (9)
  1. CLOZARIL [Suspect]
     Active Substance: CLOZAPINE
     Indication: Schizophrenia
     Dosage: 500 MILLIGRAM, QD(500 MG NIGHT)
     Route: 048
     Dates: start: 20230223
  2. VITAMIN C [Concomitant]
     Active Substance: ASCORBIC ACID
     Dosage: 500 MILLIGRAM, QD(500 MG MORNING)
     Route: 065
  3. ATORVASTATIN [Concomitant]
     Active Substance: ATORVASTATIN
     Dosage: 20 MILLIGRAM, QD(20 MILLIGRAM ,NIGHT)
     Route: 065
  4. BACLOFEN [Concomitant]
     Active Substance: BACLOFEN
     Dosage: 100 MILLIGRAM, QD(100 MILLIGRAM NIGHT)
     Route: 065
  5. BREXPIPRAZOLE [Concomitant]
     Active Substance: BREXPIPRAZOLE
     Dosage: 1.5 MILLIGRAM, QD(1.5 MILLIGRAM,MORNING)
     Route: 065
  6. FERROUS SULFATE [Concomitant]
     Active Substance: FERROUS SULFATE
     Dosage: 325 MILLIGRAM, QD(325 MILLIGRAM, MORNING)
     Route: 065
  7. SCOPOLAMINE [Concomitant]
     Active Substance: SCOPOLAMINE
     Dosage: 600 MILLIGRAM, QD(600 MILLIGRAM NIGHT)
     Route: 065
  8. IPRATROPIUM [Concomitant]
     Active Substance: IPRATROPIUM
     Dosage: 21 MICROGRAM(2 PUFFS MORNING AND NIGHT)
     Route: 065
  9. THYROXINE [Concomitant]
     Active Substance: LEVOTHYROXINE
     Dosage: 50MICROG MONDAY TO FRIDAY, 25 MICROG MORNING SATURDAY SUNDAY.
     Route: 065

REACTIONS (2)
  - Paranoia [Unknown]
  - Hospitalisation [Unknown]

NARRATIVE: CASE EVENT DATE: 20230418
